FAERS Safety Report 11053775 (Version 1)
Quarter: 2015Q2

REPORT INFORMATION
  Report Type: Spontaneous
  Country: IT (occurrence: IT)
  Receive Date: 20150421
  Receipt Date: 20150421
  Transmission Date: 20150821
  Serious: Yes (Hospitalization)
  Sender: FDA-Public Use
  Company Number: PHHY2015IT047590

PATIENT
  Age: 16 Year
  Sex: Female

DRUGS (4)
  1. FRISIUM [Suspect]
     Active Substance: CLOBAZAM
     Dosage: 40 MG, QD
     Route: 048
     Dates: start: 20150414, end: 20150414
  2. TEGRETOL [Suspect]
     Active Substance: CARBAMAZEPINE
     Indication: EPILEPSY
     Dosage: 300 MG, UNK (200 MG PLUS 100 MG)
     Route: 065
  3. FRISIUM [Suspect]
     Active Substance: CLOBAZAM
     Indication: EPILEPSY
     Dosage: 20 MG, QD
     Route: 065
  4. TEGRETOL [Suspect]
     Active Substance: CARBAMAZEPINE
     Dosage: 1.5 MG, UNK (REPORTED AS TOTAL)
     Route: 048
     Dates: start: 20150414, end: 20150414

REACTIONS (3)
  - Vomiting [Recovered/Resolved]
  - Drug abuse [Recovered/Resolved]
  - Hypotension [Recovered/Resolved]

NARRATIVE: CASE EVENT DATE: 20150415
